FAERS Safety Report 6542421-7 (Version None)
Quarter: 2010Q1

REPORT INFORMATION
  Report Type: 
  Country: None (occurrence: None)
  Receive Date: 20100119
  Receipt Date: 20100111
  Transmission Date: 20100710
  Serious: Yes (Other)
  Sender: FDA-Public Use
  Company Number: US-ASTRAZENECA-2010SE01166

PATIENT
  Age: 57 Year

DRUGS (7)
  1. CRESTOR [Suspect]
     Route: 048
     Dates: start: 20070101
  2. METOPROLOL [Concomitant]
  3. NITROGLYCERIN [Concomitant]
  4. ZETIA [Concomitant]
  5. ASPIRIN [Concomitant]
  6. PRILOSEC [Concomitant]
  7. PLAVIX [Concomitant]

REACTIONS (2)
  - BLOOD CHOLESTEROL INCREASED [None]
  - MYOCARDIAL INFARCTION [None]
